FAERS Safety Report 7759749-5 (Version None)
Quarter: 2011Q3

REPORT INFORMATION
  Report Type: 
  Country: None (occurrence: None)
  Receive Date: 20110919
  Receipt Date: 20110912
  Transmission Date: 20111222
  Serious: Yes (Death, Life-Threatening)
  Sender: FDA-Public Use
  Company Number: FR-CELGENEUS-056-50794-11091403

PATIENT
  Age: 75 Year
  Sex: Male

DRUGS (1)
  1. VIDAZA [Suspect]
     Dosage: 78 MICROGRAM/SQ. METER
     Route: 058
     Dates: start: 20100302, end: 20100303

REACTIONS (2)
  - HYPOGLYCAEMIA [None]
  - CARDIOGENIC SHOCK [None]
